FAERS Safety Report 5472631-1 (Version None)
Quarter: 2007Q4

REPORT INFORMATION
  Report Type: 
  Country: None (occurrence: None)
  Receive Date: 20071001
  Receipt Date: 20060927
  Transmission Date: 20080405
  Serious: No
  Sender: FDA-Public Use
  Company Number: US-ASTRAZENECA-2006UW15591

PATIENT
  Sex: Female
  Weight: 92.3 kg

DRUGS (3)
  1. ARIMIDEX [Suspect]
     Indication: BREAST CANCER METASTATIC
     Route: 048
     Dates: start: 20030201, end: 20050707
  2. SYNTHROID [Concomitant]
  3. EXEMESTANE [Concomitant]
     Indication: BREAST CANCER
     Route: 048

REACTIONS (8)
  - ARTHRALGIA [None]
  - BONE PAIN [None]
  - FLATULENCE [None]
  - GAIT DISTURBANCE [None]
  - LACTOSE INTOLERANCE [None]
  - NAUSEA [None]
  - PAIN IN EXTREMITY [None]
  - TRIGGER FINGER [None]
